FAERS Safety Report 5143341-5 (Version None)
Quarter: 2006Q4

REPORT INFORMATION
  Report Type: 
  Country: None (occurrence: None)
  Receive Date: 20061030
  Receipt Date: 20061016
  Transmission Date: 20070319
  Serious: Yes (Other)
  Sender: FDA-Public Use
  Company Number: 2006122742

PATIENT
  Age: 46 Year
  Sex: Female

DRUGS (5)
  1. ARTHROTEC [Suspect]
     Indication: PAIN
     Dosage: 150 MG (50 MG, 3 IN 1 D), ORAL
     Route: 048
     Dates: start: 20060928, end: 20060928
  2. ASPIRIN [Concomitant]
  3. CITALOPRAM HYDROBROMIDE [Concomitant]
  4. LIPITOR [Concomitant]
  5. DEPAKENE [Concomitant]

REACTIONS (4)
  - ACCIDENT [None]
  - EPILEPSY [None]
  - FALL [None]
  - NERVOUS SYSTEM DISORDER [None]
